FAERS Safety Report 9382832 (Version 4)
Quarter: 2014Q2

REPORT INFORMATION
  Report Type: Spontaneous
  Country: US (occurrence: US)
  Receive Date: 20130703
  Receipt Date: 20140423
  Transmission Date: 20141212
  Serious: Yes (Death, Hospitalization)
  Sender: FDA-Public Use
  Company Number: US-GLAXOSMITHKLINE-A1029905A

PATIENT
  Age: 73 Year
  Sex: Female
  Weight: 50.9 kg

DRUGS (1)
  1. AVANDIA [Suspect]
     Indication: DIABETES MELLITUS
     Dosage: 2MG UNKNOWN
     Route: 048
     Dates: start: 1999, end: 20020503

REACTIONS (5)
  - Arteriosclerosis [Fatal]
  - Acute myocardial infarction [Unknown]
  - Cardiac failure congestive [Unknown]
  - Cardiac failure congestive [Unknown]
  - Atrial fibrillation [Unknown]
